FAERS Safety Report 21656989 (Version 4)
Quarter: 2022Q4

REPORT INFORMATION
  Report Type: Spontaneous
  Country: GB (occurrence: GB)
  Receive Date: 20221129
  Receipt Date: 20221229
  Transmission Date: 20230113
  Serious: Yes (Disabling, Other)
  Sender: FDA-Public Use
  Company Number: GB-MYLANLABS-2022M1125486

PATIENT
  Age: 75 Year
  Sex: Female

DRUGS (9)
  1. PHENYTOIN [Suspect]
     Active Substance: PHENYTOIN
     Indication: Epilepsy
     Dosage: 350 MILLIGRAM (3 DAY)
     Route: 048
     Dates: start: 20221017
  2. PHENYTOIN [Suspect]
     Active Substance: PHENYTOIN
     Dosage: 300 MILLIGRAM (DOSE REDUCED END OF OCTOBER/EARLY NOVEMBER)
     Route: 048
     Dates: start: 202207
  3. PHENYTOIN SODIUM [Concomitant]
     Active Substance: PHENYTOIN SODIUM
     Indication: Epilepsy
     Dosage: 25 MILLIGRAM
     Route: 048
  4. PHENYTOIN SODIUM [Concomitant]
     Active Substance: PHENYTOIN SODIUM
     Dosage: 200 MILLIGRAM, QD
     Route: 065
     Dates: start: 202003
  5. PHENYTOIN SODIUM [Concomitant]
     Active Substance: PHENYTOIN SODIUM
     Dosage: 300 MILLIGRAM
     Route: 048
     Dates: start: 20221017
  6. PHENYTOIN SODIUM [Concomitant]
     Active Substance: PHENYTOIN SODIUM
     Dosage: 275 MILLIGRAM
     Route: 048
     Dates: start: 20221017
  7. LAMOTRIGINE [Concomitant]
     Active Substance: LAMOTRIGINE
     Indication: Product used for unknown indication
     Dosage: 50 MILLIGRAM, BID
     Route: 065
  8. LANSOPRAZOLE [Concomitant]
     Active Substance: LANSOPRAZOLE
     Indication: Product used for unknown indication
     Dosage: 15 MILLIGRAM, QD
     Route: 065
  9. CALCI D [Concomitant]
     Indication: Product used for unknown indication
     Dosage: 1000 INTERNATIONAL UNIT, AM
     Route: 065

REACTIONS (7)
  - Somnolence [Recovered/Resolved]
  - Accidental overdose [Recovered/Resolved]
  - Product appearance confusion [Recovered/Resolved]
  - Lethargy [Recovered/Resolved]
  - Dyskinesia [Recovered/Resolved]
  - Neuropathy peripheral [Unknown]
  - Ataxia [Unknown]

NARRATIVE: CASE EVENT DATE: 20220701
